FAERS Safety Report 10166115 (Version 1)
Quarter: 2014Q2

REPORT INFORMATION
  Report Type: Spontaneous
  Country: US (occurrence: US)
  Receive Date: 20140512
  Receipt Date: 20140512
  Transmission Date: 20141212
  Serious: No
  Sender: FDA-Public Use
  Company Number: US-009507513-1405USA001139

PATIENT
  Sex: Female

DRUGS (1)
  1. ZETIA [Suspect]
     Dosage: 10 MG ONCE DAILY(QD)
     Route: 048
     Dates: end: 20140428

REACTIONS (3)
  - Vertigo [Recovering/Resolving]
  - Epistaxis [Recovering/Resolving]
  - Chest pain [Recovering/Resolving]
